FAERS Safety Report 6032888-5 (Version None)
Quarter: 2009Q1

REPORT INFORMATION
  Report Type: 
  Country: None (occurrence: None)
  Receive Date: 20090107
  Receipt Date: 20090107
  Transmission Date: 20090719
  Serious: Yes (Life-Threatening)
  Sender: FDA-Public Use
  Company Number: None

PATIENT
  Age: 79 Year
  Sex: Female
  Weight: 72.6 kg

DRUGS (1)
  1. SOTALOL HCL [Suspect]
     Indication: ATRIAL FIBRILLATION
     Dosage: 80 MG Q12 HOURS PO
     Route: 048
     Dates: start: 20080121, end: 20080122

REACTIONS (7)
  - DEHYDRATION [None]
  - ELECTROCARDIOGRAM QT PROLONGED [None]
  - HYPERSOMNIA [None]
  - RENAL FAILURE [None]
  - SEDATION [None]
  - SICK SINUS SYNDROME [None]
  - TORSADE DE POINTES [None]
